FAERS Safety Report 6003349-4 (Version None)
Quarter: 2008Q4

REPORT INFORMATION
  Report Type: 
  Country: None (occurrence: None)
  Receive Date: 20081212
  Receipt Date: 20081205
  Transmission Date: 20090506
  Serious: Yes (Other)
  Sender: FDA-Public Use
  Company Number: 2008JP005419

PATIENT
  Age: 72 Year
  Sex: Female

DRUGS (10)
  1. VESICARE [Suspect]
     Indication: HYPERTONIC BLADDER
     Dosage: 5 MG, UID/QD, ORAL
     Route: 048
     Dates: start: 20081008, end: 20081008
  2. CHOREITOU (HERBAL EXTRACT NOS) POWDER [Concomitant]
  3. BLOPRESS (CANDESARTAN CILEXETIL) TABLET [Concomitant]
  4. NORVASC [Concomitant]
  5. CRESTOR [Concomitant]
  6. WARFARIN SODIUM [Concomitant]
  7. ZOLPIDEM TARTRATE [Concomitant]
  8. ALOSENN (TARAXACUM OFFICINALE, SENNA ALEXANDRINA LEAF, SENNA ALEXANDRI [Concomitant]
  9. MAGMITT (MAGNESIUM OXIDE) [Concomitant]
  10. GASTER D ORODISPERSIBLE CR TABLET [Concomitant]

REACTIONS (5)
  - ASTHMA [None]
  - BLOOD PRESSURE SYSTOLIC INCREASED [None]
  - DRUG ERUPTION [None]
  - PRURITUS GENERALISED [None]
  - URTICARIA [None]
